FAERS Safety Report 4811324-8 (Version None)
Quarter: 2005Q4

REPORT INFORMATION
  Report Type: 
  Country: None (occurrence: None)
  Receive Date: 20051026
  Receipt Date: 20051026
  Transmission Date: 20060501
  Serious: Yes (Life-Threatening)
  Sender: FDA-Public Use
  Company Number: None

PATIENT
  Age: 25 Year
  Sex: Female
  Weight: 102.0593 kg

DRUGS (2)
  1. LOESTRIN 1.5/30 [Suspect]
     Indication: MENOMETRORRHAGIA
     Dosage: ONE TABLET DAILY PO
     Route: 048
  2. FERROUS SULFATE TAB [Concomitant]

REACTIONS (3)
  - DEEP VEIN THROMBOSIS [None]
  - EMBOLISM [None]
  - PULMONARY EMBOLISM [None]
